FAERS Safety Report 6960917-0 (Version None)
Quarter: 2010Q3

REPORT INFORMATION
  Report Type: 
  Country: None (occurrence: None)
  Receive Date: 20100901
  Receipt Date: 20100827
  Transmission Date: 20110219
  Serious: Yes (Hospitalization)
  Sender: FDA-Public Use
  Company Number: US-GILEAD-2010-0031401

PATIENT
  Age: 69 Year
  Sex: Female
  Weight: 68.1 kg

DRUGS (5)
  1. LETAIRIS [Suspect]
     Indication: PULMONARY ARTERIAL HYPERTENSION
     Route: 048
     Dates: start: 20070817
  2. REVATIO [Concomitant]
     Indication: PULMONARY ARTERIAL HYPERTENSION
     Dates: start: 20061226
  3. TRETROSTINIL [Concomitant]
  4. HYDROCHLOROTHIAZIDE [Concomitant]
  5. FAMOTIDINE [Concomitant]

REACTIONS (1)
  - CATHETERISATION CARDIAC [None]
